FAERS Safety Report 23152132 (Version 2)
Quarter: 2023Q4

REPORT INFORMATION
  Report Type: Report from Study
  Country: CA (occurrence: CA)
  Receive Date: 20231107
  Receipt Date: 20231116
  Transmission Date: 20240110
  Serious: Yes (Hospitalization)
  Sender: FDA-Public Use
  Company Number: CA-SAMSUNG BIOEPIS-SB-2023-29362

PATIENT
  Age: 30 Year
  Sex: Male

DRUGS (1)
  1. RENFLEXIS [Suspect]
     Active Substance: INFLIXIMAB-ABDA
     Indication: Crohn^s disease
     Route: 042
     Dates: start: 20220415, end: 20231027

REACTIONS (3)
  - Cellulite [Not Recovered/Not Resolved]
  - Wound [Recovering/Resolving]
  - Product use issue [Unknown]
